FAERS Safety Report 22265998 (Version 1)
Quarter: 2023Q2

REPORT INFORMATION
  Report Type: Spontaneous
  Country: US (occurrence: None)
  Receive Date: 20230426
  Receipt Date: 20230426
  Transmission Date: 20230721
  Serious: Yes (Death)
  Sender: FDA-Public Use
  Company Number: None

PATIENT
  Age: 78 Year
  Sex: Male

DRUGS (9)
  1. PIRFENIDONE [Suspect]
     Active Substance: PIRFENIDONE
     Indication: Idiopathic pulmonary fibrosis
     Dosage: FREQUENCY : DAILY;?
     Route: 048
     Dates: start: 20190401, end: 20230119
  2. LEVETIRACETAM [Concomitant]
  3. LISINOPRIL-HCTZ [Concomitant]
  4. IPRATROPIUM NASAL SPRAY [Concomitant]
  5. ALBUTEROL HFA [Concomitant]
  6. ZOFRAN [Concomitant]
  7. TRAZODONE [Concomitant]
  8. ASPIRIN [Concomitant]
  9. BETAMETHASONE TOP CREAM [Concomitant]

REACTIONS (1)
  - Hospice care [None]

NARRATIVE: CASE EVENT DATE: 20230119
